FAERS Safety Report 5162889-0 (Version None)
Quarter: 2006Q4

REPORT INFORMATION
  Report Type: 
  Country: None (occurrence: None)
  Receive Date: 20061121
  Receipt Date: 20061108
  Transmission Date: 20070319
  Serious: Yes (Death, Other)
  Sender: FDA-Public Use
  Company Number: 2006US-04436

PATIENT
  Age: 59 Year

DRUGS (1)
  1. ISOTRETINOIN [Suspect]

REACTIONS (1)
  - DEATH [None]
